FAERS Safety Report 4491751-1 (Version None)
Quarter: 2004Q4

REPORT INFORMATION
  Report Type: 
  Country: None (occurrence: None)
  Receive Date: 20041103
  Receipt Date: 20041025
  Transmission Date: 20050328
  Serious: Yes (Disabling)
  Sender: FDA-Public Use
  Company Number: US-MERCK-0410USA03724

PATIENT
  Age: 82 Year
  Sex: Female
  Weight: 63 kg

DRUGS (6)
  1. VIOXX [Suspect]
     Indication: ARTHRITIS
     Route: 048
     Dates: start: 20031229, end: 20040101
  2. VIOXX [Suspect]
     Indication: COSTOCHONDRITIS
     Route: 048
     Dates: start: 20031229, end: 20040101
  3. NEXIUM [Concomitant]
     Route: 065
  4. ATIVAN [Concomitant]
     Route: 065
  5. ASPIRIN [Concomitant]
     Route: 065
  6. DARVOCET-N 100 [Concomitant]
     Route: 065

REACTIONS (3)
  - DEPRESSION [None]
  - PANIC DISORDER [None]
  - PERIPHERAL VASCULAR DISORDER [None]
